FAERS Safety Report 4837530-4 (Version None)
Quarter: 2005Q4

REPORT INFORMATION
  Report Type: 
  Country: None (occurrence: None)
  Receive Date: 20051123
  Receipt Date: 20051123
  Transmission Date: 20060501
  Serious: No
  Sender: FDA-Public Use
  Company Number: None

PATIENT
  Age: 32 Year
  Sex: Male
  Weight: 89.8 kg

DRUGS (1)
  1. HALOPERIDOL [Suspect]
     Indication: ANGER
     Dosage: 5MG, 5MG Q4H, ORAL
     Route: 048

REACTIONS (1)
  - DYSTONIA [None]
